FAERS Safety Report 10264816 (Version 1)
Quarter: 2014Q2

REPORT INFORMATION
  Report Type: Spontaneous
  Country: US (occurrence: US)
  Receive Date: 20140627
  Receipt Date: 20140627
  Transmission Date: 20141212
  Serious: Yes (Other)
  Sender: FDA-Public Use
  Company Number: US-JNJFOC-20140612963

PATIENT
  Age: 57 Year
  Sex: Female
  Weight: 99.79 kg

DRUGS (7)
  1. STELARA [Suspect]
     Indication: PSORIASIS
     Route: 058
     Dates: start: 2012
  2. VITAMIN D [Concomitant]
     Indication: VITAMIN D DECREASED
     Route: 048
     Dates: start: 2012
  3. OXYBUTIN [Concomitant]
     Indication: BLADDER DISORDER
     Route: 048
     Dates: start: 2008
  4. OMEPRAZOLE [Concomitant]
     Indication: DYSPEPSIA
     Route: 048
  5. LEVOTHYROXINE [Concomitant]
     Indication: THYROID DISORDER
     Route: 048
     Dates: start: 1999
  6. AMLODIPINE BESYLATE [Concomitant]
     Indication: BLOOD PRESSURE
     Route: 048
     Dates: start: 2009
  7. CARVEDILOL [Concomitant]
     Indication: BLOOD PRESSURE
     Route: 048
     Dates: start: 2012

REACTIONS (1)
  - Cataract [Not Recovered/Not Resolved]
